FAERS Safety Report 4865305-9 (Version None)
Quarter: 2005Q4

REPORT INFORMATION
  Report Type: 
  Country: None (occurrence: None)
  Receive Date: 20051223
  Receipt Date: 20051219
  Transmission Date: 20060501
  Serious: Yes (Other)
  Sender: FDA-Public Use
  Company Number: 2005GB02462

PATIENT
  Age: 54 Year
  Sex: Female

DRUGS (2)
  1. OMEPRAZOLE [Suspect]
     Indication: GASTROOESOPHAGEAL REFLUX DISEASE
     Route: 048
     Dates: start: 20050915, end: 20051015
  2. NAPROXEN [Suspect]
     Indication: ARTHRITIS
     Route: 048
     Dates: start: 20050915, end: 20051015

REACTIONS (2)
  - VITREOUS DETACHMENT [None]
  - VITREOUS FLOATERS [None]
